FAERS Safety Report 8211703 (Version 2)
Quarter: 2012Q4

REPORT INFORMATION
  Report Type: 
  Country: US (occurrence: US)
  Receive Date: 20111029
  Receipt Date: 20121023
  Transmission Date: 20130627
  Serious: No
  Sender: FDA-Public Use
  Company Number: US-AMGEN-USASP2011010517

PATIENT
  Age: 66 Year
  Sex: Female

DRUGS (1)
  1. ENBREL [Suspect]
     Indication: RHEUMATOID ARTHRITIS
     Dosage: 50 mg, qwk
     Route: 058
     Dates: start: 20101206, end: 201102

REACTIONS (8)
  - Arthralgia [Not Recovered/Not Resolved]
  - Joint adhesion [Not Recovered/Not Resolved]
  - Chills [Unknown]
  - Injection site reaction [Unknown]
  - Injection site warmth [Unknown]
  - Injection site pruritus [Unknown]
  - Injection site erythema [Unknown]
  - Injection site bruising [Unknown]
